FAERS Safety Report 16326919 (Version 4)
Quarter: 2019Q2

REPORT INFORMATION
  Report Type: Spontaneous
  Country: MX (occurrence: MX)
  Receive Date: 20190517
  Receipt Date: 20190610
  Transmission Date: 20190711
  Serious: Yes (Death, Hospitalization, Other)
  Sender: FDA-Public Use
  Company Number: MX-SEATTLE GENETICS-2019SGN01671

PATIENT
  Sex: Male

DRUGS (2)
  1. DOXYCYCLINE. [Concomitant]
     Active Substance: DOXYCYCLINE
     Indication: HEPATITIS B
     Dosage: UNK
     Route: 065
  2. ADCETRIS [Suspect]
     Active Substance: BRENTUXIMAB VEDOTIN
     Indication: HODGKIN^S DISEASE
     Dosage: 1.8 MILLIGRAM/KILOGRAM, Q28D
     Route: 042
     Dates: start: 201811

REACTIONS (7)
  - Hypotension [Unknown]
  - Melaena [Unknown]
  - Hodgkin^s disease [Fatal]
  - Ascites [Unknown]
  - Skin lesion [Unknown]
  - Musculoskeletal chest pain [Unknown]
  - Liver function test abnormal [Unknown]
